FAERS Safety Report 6582674-2 (Version None)
Quarter: 2010Q1

REPORT INFORMATION
  Report Type: 
  Country: None (occurrence: None)
  Receive Date: 20100212
  Receipt Date: 20100212
  Transmission Date: 20100710
  Serious: Yes (Life-Threatening, Hospitalization)
  Sender: FDA-Public Use
  Company Number: None

PATIENT
  Age: 75 Year
  Sex: Male
  Weight: 88 kg

DRUGS (2)
  1. VANCOMYCIN [Suspect]
     Indication: THROMBOCYTOPENIA
     Dosage: 1000 MG BID IV
     Route: 042
     Dates: start: 20090218, end: 20090224
  2. PIPERACILLIN AND TAZOBACTAM [Suspect]
     Indication: THROMBOCYTOPENIA
     Dosage: 3375 GM QID IV
     Route: 042
     Dates: start: 20090220, end: 20090224

REACTIONS (1)
  - THROMBOCYTOPENIA [None]
